FAERS Safety Report 5618244-X (Version None)
Quarter: 2008Q1

REPORT INFORMATION
  Report Type: 
  Country: None (occurrence: None)
  Receive Date: 20080207
  Receipt Date: 20080128
  Transmission Date: 20080703
  Serious: Yes (Other)
  Sender: FDA-Public Use
  Company Number: US-BAYER-200714228BCC

PATIENT
  Age: 73 Year
  Sex: Female
  Weight: 77 kg

DRUGS (10)
  1. ASPIRIN [Suspect]
     Indication: ISCHAEMIC HEART DISEASE PROPHYLAXIS
     Dosage: TOTAL DAILY DOSE: 325 MG  UNIT DOSE: 325 MG
     Route: 048
     Dates: start: 19870101
  2. EXTRA STRENGTH BAYER BACK + BODY PAIN ASPIRIN [Suspect]
     Indication: BACK PAIN
     Dosage: UNIT DOSE: 500 MG
     Route: 048
     Dates: start: 20071218
  3. GLUCOPHAGE [Concomitant]
     Indication: DIABETES MELLITUS
     Route: 065
  4. LIPITOR [Concomitant]
     Route: 065
  5. HUMULIN INSULIN R [Concomitant]
     Indication: DIABETES MELLITUS
     Route: 065
  6. HUMULIN INSULIN R [Concomitant]
     Route: 065
  7. LISINOPRIL [Concomitant]
  8. LIPITOR [Concomitant]
     Indication: BLOOD CHOLESTEROL INCREASED
     Route: 048
  9. HUMULIN N [Concomitant]
     Indication: DIABETES MELLITUS
     Route: 065
  10. HUMULIN N [Concomitant]
     Route: 065

REACTIONS (1)
  - BLOOD GLUCOSE INCREASED [None]
